FAERS Safety Report 16389993 (Version 1)
Quarter: 2019Q2

REPORT INFORMATION
  Report Type: Spontaneous
  Country: FR (occurrence: FR)
  Receive Date: 20190604
  Receipt Date: 20190604
  Transmission Date: 20190711
  Serious: Yes (Death)
  Sender: FDA-Public Use
  Company Number: FR-PFIZER INC-2019233556

PATIENT
  Age: 59 Year
  Sex: Male
  Weight: 96 kg

DRUGS (2)
  1. SUTENT [Suspect]
     Active Substance: SUNITINIB MALATE
     Indication: RENAL CANCER
     Dosage: 50 MG, 1X/DAY
     Route: 048
     Dates: start: 20190403, end: 20190430
  2. CABOMETYX [Suspect]
     Active Substance: CABOZANTINIB S-MALATE
     Indication: RENAL CANCER
     Dosage: 60 MG, 1X/DAY
     Route: 048
     Dates: start: 20190304, end: 20190402

REACTIONS (5)
  - Ileus [Fatal]
  - Hypothermia [Fatal]
  - Shock [Fatal]
  - Overgrowth bacterial [Fatal]
  - Gastric pneumatosis [Fatal]

NARRATIVE: CASE EVENT DATE: 20190505
